APPROVED DRUG PRODUCT: TRIAZOLAM
Active Ingredient: TRIAZOLAM
Strength: 0.125MG
Dosage Form/Route: TABLET;ORAL
Application: A214219 | Product #001 | TE Code: AB
Applicant: NOVAST LABORATORIES LTD
Approved: Oct 20, 2020 | RLD: No | RS: No | Type: RX